FAERS Safety Report 4779558-9 (Version None)
Quarter: 2005Q3

REPORT INFORMATION
  Report Type: 
  Country: None (occurrence: None)
  Receive Date: 20050923
  Receipt Date: 20050914
  Transmission Date: 20060218
  Serious: Yes (Death, Hospitalization, Other)
  Sender: FDA-Public Use
  Company Number: US-2005-016554

PATIENT
  Age: 73 Year
  Sex: Male
  Weight: 78 kg

DRUGS (10)
  1. CAMPATH [Suspect]
     Indication: CHRONIC LYMPHOCYTIC LEUKAEMIA
     Dosage: 3X/ WEEK
     Dates: start: 20050418, end: 20050620
  2. BACTRIM DS [Concomitant]
  3. ASPIRIN [Concomitant]
  4. VALCYTE [Concomitant]
  5. VICODIN [Concomitant]
  6. HYCODAN               /CAN/ (HYDROCODONE BITARTRATE) [Concomitant]
  7. MULTIVITAMINS (PANTHENOL, RETINOL) [Concomitant]
  8. ZANTAC [Concomitant]
  9. UROXATRAL [Concomitant]
  10. ACYCLOVIR [Concomitant]

REACTIONS (9)
  - ALVEOLAR PROTEINOSIS [None]
  - ASTHENIA [None]
  - CYTOMEGALOVIRUS TEST POSITIVE [None]
  - HYPOXIA [None]
  - LEUKOPENIA [None]
  - MYOSITIS [None]
  - NAUSEA [None]
  - NEUTROPHIL PERCENTAGE INCREASED [None]
  - PNEUMONIA [None]
